FAERS Safety Report 7139449-5 (Version None)
Quarter: 2010Q4

REPORT INFORMATION
  Report Type: 
  Country: None (occurrence: None)
  Receive Date: 20101206
  Receipt Date: 20101202
  Transmission Date: 20110411
  Serious: Yes (Death, Other)
  Sender: FDA-Public Use
  Company Number: US-PFIZER INC-2010094973

PATIENT
  Sex: Male

DRUGS (2)
  1. TIKOSYN [Suspect]
     Indication: ATRIAL FIBRILLATION
     Dosage: 0.5 MG, 2X/DAY
     Route: 048
     Dates: start: 20080101
  2. TIKOSYN [Suspect]
     Dosage: 0.5MG IN THE MORNING; 0.25MG IN EENING
     Route: 048

REACTIONS (3)
  - ARRHYTHMIA [None]
  - DEATH [None]
  - GLOMERULAR FILTRATION RATE DECREASED [None]
